FAERS Safety Report 26013828 (Version 1)
Quarter: 2025Q4

REPORT INFORMATION
  Report Type: Spontaneous
  Country: JP (occurrence: JP)
  Receive Date: 20251107
  Receipt Date: 20251107
  Transmission Date: 20260117
  Serious: Yes (Other)
  Sender: MERCK SHARP & DOHME LLC
  Company Number: JP-009507513-2347980

PATIENT
  Age: 6 Decade
  Sex: Female

DRUGS (5)
  1. KEYTRUDA [Suspect]
     Active Substance: PEMBROLIZUMAB
     Indication: Non-small cell lung cancer stage II
  2. DOXORUBICIN [Suspect]
     Active Substance: DOXORUBICIN
     Indication: Non-small cell lung cancer stage II
  3. CARBOPLATIN [Suspect]
     Active Substance: CARBOPLATIN
     Indication: Non-small cell lung cancer stage II
  4. PACLITAXEL [Suspect]
     Active Substance: PACLITAXEL
     Indication: Non-small cell lung cancer stage II
  5. DOXORUBICIN [Suspect]
     Active Substance: DOXORUBICIN
     Indication: Non-small cell lung cancer stage II

REACTIONS (4)
  - Neuromyopathy [Unknown]
  - Interstitial lung disease [Unknown]
  - Platelet count decreased [Unknown]
  - Myocarditis [Unknown]
